FAERS Safety Report 17337057 (Version 2)
Quarter: 2020Q1

REPORT INFORMATION
  Report Type: Report from Study
  Country: GT (occurrence: GT)
  Receive Date: 20200129
  Receipt Date: 20200318
  Transmission Date: 20200409
  Serious: Yes (Other)
  Sender: FDA-Public Use
  Company Number: NVSC2020GT019608

PATIENT
  Age: 66 Year
  Sex: Female

DRUGS (6)
  1. EXELON [Suspect]
     Active Substance: RIVASTIGMINE TARTRATE
     Indication: PRODUCT USED FOR UNKNOWN INDICATION
     Dosage: 9.5 MG, QD (PATCH 10 CM2), 18 MG RIVASTIGMINE BASE
     Route: 062
  2. EXELON [Suspect]
     Active Substance: RIVASTIGMINE TARTRATE
     Dosage: 18 MG, PATCH 10 CM2), 18 MG RIVASTIGMINE BASE
     Route: 065
     Dates: start: 202001
  3. EXELON [Suspect]
     Active Substance: RIVASTIGMINE TARTRATE
     Dosage: 18 MG, PATCH 10 CM2), 18 MG RIVASTIGMINE BASE
     Route: 065
     Dates: start: 202002
  4. EXELON [Suspect]
     Active Substance: RIVASTIGMINE TARTRATE
     Dosage: 4.6 MG, QD (PATCH 5 CM2), 9 MG RIVASTIGMINE BASE
     Route: 062
  5. EXELON [Suspect]
     Active Substance: RIVASTIGMINE TARTRATE
     Dosage: 9 MG, UNKNOWN (9MG/5 3 MONTHS AGO)
     Route: 065
     Dates: end: 202003
  6. EXELON [Suspect]
     Active Substance: RIVASTIGMINE TARTRATE
     Dosage: 18 MG, UNKNOWN (18MG/10: 3 MONTHS AGO)
     Route: 065
     Dates: start: 202003

REACTIONS (6)
  - Coordination abnormal [Unknown]
  - Amnesia [Unknown]
  - Malaise [Unknown]
  - Stress [Unknown]
  - Confusional state [Unknown]
  - Cerebral infarction [Unknown]
